FAERS Safety Report 8964332 (Version 1)
Quarter: 2012Q4

REPORT INFORMATION
  Report Type: 
  Country: US (occurrence: US)
  Receive Date: 20121214
  Receipt Date: 20121214
  Transmission Date: 20130627
  Serious: No
  Sender: FDA-Public Use
  Company Number: US-GLAXOSMITHKLINE-A0971024A

PATIENT
  Age: 63 Year
  Sex: Male

DRUGS (1)
  1. AVODART [Suspect]
     Indication: PRODUCT USED FOR UNKNOWN INDICATION
     Dosage: .5MG Unknown
     Route: 048
     Dates: start: 20100510

REACTIONS (3)
  - Sexual dysfunction [Unknown]
  - Adverse drug reaction [Unknown]
  - Adverse event [Unknown]
